FAERS Safety Report 9746259 (Version 1)
Quarter: 2013Q4

REPORT INFORMATION
  Report Type: Spontaneous
  Country: US (occurrence: US)
  Receive Date: 20131211
  Receipt Date: 20131211
  Transmission Date: 20140711
  Serious: No
  Sender: FDA-Public Use
  Company Number: US-009507513-1312USA004459

PATIENT
  Sex: Female

DRUGS (2)
  1. MAXALT MLT [Suspect]
  2. IMITREX (SUMATRIPTAN SUCCINATE) [Concomitant]

REACTIONS (5)
  - Overdose [Unknown]
  - Wrong technique in drug usage process [Unknown]
  - Drug ineffective [Unknown]
  - Product quality issue [Unknown]
  - Palpitations [Unknown]
